FAERS Safety Report 9377492 (Version 1)
Quarter: 2013Q3

REPORT INFORMATION
  Report Type: Report from Study
  Country: US (occurrence: US)
  Receive Date: 20130701
  Receipt Date: 20130701
  Transmission Date: 20140515
  Serious: Yes (Hospitalization)
  Sender: FDA-Public Use
  Company Number: US-ELI_LILLY_AND_COMPANY-US201306006836

PATIENT
  Age: 51 Year
  Sex: Male
  Weight: 82.6 kg

DRUGS (5)
  1. GEMCITABINE HYDROCHLORIDE [Suspect]
     Indication: METASTATIC RENAL CELL CARCINOMA
     Dosage: 1000 MG/M2, OTHER
     Route: 042
     Dates: start: 20130507
  2. SUNITINIB MALATE [Suspect]
     Indication: METASTATIC RENAL CELL CARCINOMA
     Dosage: 37.5 MG, OTHER
     Route: 042
     Dates: start: 20130507
  3. ATIVAN [Concomitant]
  4. COMPAZINE [Concomitant]
  5. HYDROMORPHONE HYDROCHLORIDE [Concomitant]

REACTIONS (1)
  - Infection [Unknown]
